FAERS Safety Report 4948856-8 (Version None)
Quarter: 2006Q1

REPORT INFORMATION
  Report Type: 
  Country: None (occurrence: None)
  Receive Date: 20060321
  Receipt Date: 20060310
  Transmission Date: 20060701
  Serious: Yes (Disabling)
  Sender: FDA-Public Use
  Company Number: AU-ABBOTT-06P-008-0327560-00

PATIENT
  Sex: Female

DRUGS (3)
  1. EPILIM TABLETS [Suspect]
     Indication: DRUG USE FOR UNKNOWN INDICATION
     Route: 048
     Dates: start: 20050201
  2. VENLAFAXINE HCL [Concomitant]
     Indication: BIPOLAR DISORDER
     Route: 048
     Dates: start: 20050201, end: 20060201
  3. QUETIAPINE [Concomitant]
     Indication: BIPOLAR DISORDER
     Route: 048
     Dates: start: 20050201, end: 20060201

REACTIONS (1)
  - FRACTURE [None]
